FAERS Safety Report 6584767-2 (Version None)
Quarter: 2010Q1

REPORT INFORMATION
  Report Type: 
  Country: None (occurrence: None)
  Receive Date: 20100217
  Receipt Date: 20100212
  Transmission Date: 20100710
  Serious: Yes (Death, Hospitalization)
  Sender: FDA-Public Use
  Company Number: PHHY2009MX35380

PATIENT
  Age: 4 Year
  Sex: Female

DRUGS (4)
  1. TRILEPTAL [Suspect]
     Indication: EPILEPSY
     Dosage: 10 ML PER DAY
     Dates: start: 20060401
  2. TOPAMAX [Concomitant]
  3. SODIUM SULFATE [Concomitant]
  4. AMINO ACIDS [Concomitant]

REACTIONS (1)
  - PNEUMONIA STAPHYLOCOCCAL [None]
